FAERS Safety Report 4806861-6 (Version None)
Quarter: 2005Q4

REPORT INFORMATION
  Report Type: 
  Country: None (occurrence: None)
  Receive Date: 20051024
  Receipt Date: 20010209
  Transmission Date: 20060501
  Serious: Yes (Hospitalization)
  Sender: FDA-Public Use
  Company Number: GB-SOLVAY-00205003346

PATIENT
  Age: 32064 Day
  Sex: Female
  Weight: 87 kg

DRUGS (14)
  1. DIGOXIN [Concomitant]
     Indication: ILL-DEFINED DISORDER
     Dosage: DAILY DOSE:  UNKNOWN
     Route: 065
  2. PERINDOPRIL [Suspect]
     Indication: CARDIAC FAILURE CONGESTIVE
     Dosage: DAILY DOSE: 4 MILLIGRAM(S)
     Route: 048
     Dates: start: 20000504, end: 20010514
  3. COVERSYL [Suspect]
     Indication: CARDIAC FAILURE CONGESTIVE
     Dosage: DAILY DOSE: 2 MILLIGRAM(S)
     Route: 048
     Dates: start: 20010514, end: 20010904
  4. COVERSYL [Suspect]
     Dosage: DAILY DOSE: 4 MILLIGRAM(S)
     Route: 048
     Dates: start: 20010905, end: 20011206
  5. COVERSYL [Suspect]
     Dosage: DAILY DOSE: 8 MILLIGRAM(S)
     Route: 048
     Dates: start: 20011201, end: 20020101
  6. COVERSYL [Suspect]
     Dosage: DAILY DOSE: 4 MILLIGRAM(S)
     Route: 048
     Dates: start: 20020101
  7. ATENOLOL [Concomitant]
     Indication: ILL-DEFINED DISORDER
     Dosage: DAILY DOSE:  UNKNOWN
     Route: 048
     Dates: start: 20010112
  8. AMIODARONE HCL [Concomitant]
     Indication: ILL-DEFINED DISORDER
     Dosage: DAILY DOSE:  UNKNOWN
     Route: 065
     Dates: start: 20010111, end: 20030429
  9. L-THYROXIN [Concomitant]
     Indication: ILL-DEFINED DISORDER
     Dosage: DAILY DOSE:  UNKNOWN
     Route: 065
     Dates: start: 20010111
  10. PHENYTOIN [Concomitant]
     Indication: ILL-DEFINED DISORDER
     Dosage: DAILY DOSE:  UNKNOWN
     Route: 065
     Dates: start: 20010112
  11. FERROUS SULFATE TAB [Concomitant]
     Indication: ILL-DEFINED DISORDER
     Dosage: DAILY DOSE:  UNKNOWN
     Route: 065
  12. ASPIRIN [Concomitant]
     Indication: ILL-DEFINED DISORDER
     Dosage: DAILY DOSE:  UNKNOWN
     Route: 048
     Dates: end: 20030502
  13. FRUSEMIDE [Concomitant]
     Indication: ILL-DEFINED DISORDER
     Dosage: DAILY DOSE:  UNKNOWN
     Route: 048
  14. CARVEDILOL [Concomitant]
     Indication: ILL-DEFINED DISORDER
     Dosage: DAILY DOSE:  UNKNOWN
     Route: 048

REACTIONS (12)
  - ANAEMIA [None]
  - ANGINA PECTORIS [None]
  - ANGINA UNSTABLE [None]
  - ATRIAL FIBRILLATION [None]
  - CARDIAC FAILURE CONGESTIVE [None]
  - CHEST PAIN [None]
  - CONVULSION [None]
  - DYSPNOEA [None]
  - HYPOTHYROIDISM [None]
  - LEFT VENTRICULAR FAILURE [None]
  - PULMONARY OEDEMA [None]
  - URINARY TRACT INFECTION [None]
